FAERS Safety Report 4394999-X (Version None)
Quarter: 2004Q3

REPORT INFORMATION
  Report Type: 
  Country: None (occurrence: None)
  Receive Date: 20040712
  Receipt Date: 20040701
  Transmission Date: 20050211
  Serious: Yes (Hospitalization, Other)
  Sender: FDA-Public Use
  Company Number: PHBS2004TW08920

PATIENT
  Age: 49 Year
  Sex: Female

DRUGS (2)
  1. DICLOFENAC [Suspect]
     Dosage: 75 MG, UNK
     Dates: start: 20020801, end: 20021001
  2. DICLOFENAC [Suspect]
     Dosage: 50 MG, BID
     Route: 048

REACTIONS (28)
  - ARTERIAL OCCLUSIVE DISEASE [None]
  - ARTERIAL THROMBOSIS [None]
  - BACK PAIN [None]
  - BIOPSY KIDNEY ABNORMAL [None]
  - BLOOD ALBUMIN DECREASED [None]
  - BLOOD CHOLESTEROL INCREASED [None]
  - BLOOD CREATININE INCREASED [None]
  - BLOOD TRIGLYCERIDES INCREASED [None]
  - BLOOD UREA INCREASED [None]
  - CYANOSIS [None]
  - EOSINOPHILIA [None]
  - FEELING COLD [None]
  - GLOMERULONEPHRITIS MINIMAL LESION [None]
  - GLOMERULONEPHROPATHY [None]
  - NEPHROTIC SYNDROME [None]
  - PAIN [None]
  - PITTING OEDEMA [None]
  - PROTEIN TOTAL DECREASED [None]
  - PROTEIN URINE PRESENT [None]
  - PROTEINURIA [None]
  - PULSE ABSENT [None]
  - PYREXIA [None]
  - RASH [None]
  - RENAL FAILURE ACUTE [None]
  - RENAL IMPAIRMENT [None]
  - THROMBECTOMY [None]
  - URINE ANALYSIS ABNORMAL [None]
  - WHITE BLOOD CELL COUNT INCREASED [None]
